FAERS Safety Report 20625157 (Version 1)
Quarter: 2022Q1

REPORT INFORMATION
  Report Type: Spontaneous
  Country: JP (occurrence: JP)
  Receive Date: 20220323
  Receipt Date: 20220323
  Transmission Date: 20220423
  Serious: Yes (Hospitalization, Other)
  Sender: FDA-Public Use
  Company Number: JP-ASTELLAS-2022JP004605

PATIENT
  Age: 70 Year
  Sex: Male

DRUGS (1)
  1. XOSPATA [Suspect]
     Active Substance: GILTERITINIB
     Indication: Acute myeloid leukaemia
     Route: 065
     Dates: start: 20220207

REACTIONS (3)
  - Small intestine ulcer [Recovering/Resolving]
  - Gastrointestinal haemorrhage [Recovering/Resolving]
  - Cytomegalovirus infection [Recovering/Resolving]
